FAERS Safety Report 15487791 (Version 2)
Quarter: 2018Q4

REPORT INFORMATION
  Report Type: Spontaneous
  Country: IT (occurrence: IT)
  Receive Date: 20181011
  Receipt Date: 20181011
  Transmission Date: 20190205
  Serious: Yes (Hospitalization, Other)
  Sender: FDA-Public Use
  Company Number: ALCN2011IT002988

PATIENT
  Age: 65 Year
  Sex: Male

DRUGS (6)
  1. TOBREX [Suspect]
     Active Substance: TOBRAMYCIN
     Indication: CORNEAL ABSCESS
     Dosage: UNK UNK, Q3H
     Route: 047
  2. AMPICILLIN 0.8% [Suspect]
     Active Substance: AMPICILLIN
     Indication: CORNEAL ABSCESS
     Dosage: UNK UNK, QID
     Route: 047
  3. LEVOFLOXACIN 0.5% [Suspect]
     Active Substance: LEVOFLOXACIN
     Indication: ANTIFUNGAL TREATMENT
     Dosage: UNK, QID
     Route: 065
  4. KETOCONAZOLE 0.4% [Suspect]
     Active Substance: KETOCONAZOLE
     Indication: CORNEAL ABSCESS
     Dosage: UNK, TID
     Route: 065
  5. VORICONAZOLE. [Suspect]
     Active Substance: VORICONAZOLE
     Indication: ANTIFUNGAL TREATMENT
     Dosage: UNK UNK, QID
     Route: 047
  6. DEXAMETHASONE. [Suspect]
     Active Substance: DEXAMETHASONE
     Indication: CORNEAL ABSCESS
     Dosage: UNK
     Route: 047

REACTIONS (2)
  - Keratopathy [Recovered/Resolved]
  - Drug ineffective [Unknown]
